FAERS Safety Report 6383423-3 (Version None)
Quarter: 2009Q3

REPORT INFORMATION
  Report Type: 
  Country: None (occurrence: None)
  Receive Date: 20090929
  Receipt Date: 20090929
  Transmission Date: 20100115
  Serious: No
  Sender: FDA-Public Use
  Company Number: None

PATIENT
  Sex: Female
  Weight: 73.9363 kg

DRUGS (2)
  1. ZOLOFT [Suspect]
     Indication: DEPRESSION
     Dosage: 100MG 1 PO Q AM #90 DNS RF X 1
     Route: 048
  2. ZOLOFT [Suspect]
     Indication: PANIC REACTION
     Dosage: 100MG 1 PO Q AM #90 DNS RF X 1
     Route: 048

REACTIONS (7)
  - ANXIETY [None]
  - DEPRESSION [None]
  - DRUG EFFECT DECREASED [None]
  - PRODUCT SUBSTITUTION ISSUE [None]
  - SLEEP DISORDER [None]
  - STRESS [None]
  - WEIGHT LOSS POOR [None]
